FAERS Safety Report 4923004-9 (Version None)
Quarter: 2006Q1

REPORT INFORMATION
  Report Type: 
  Country: None (occurrence: None)
  Receive Date: 20060113
  Receipt Date: 20050404
  Transmission Date: 20060701
  Serious: Yes (Other)
  Sender: FDA-Public Use
  Company Number: HQWYE698005APR05

PATIENT
  Age: 62 Year
  Sex: Female

DRUGS (6)
  1. PREMPRO [Suspect]
     Indication: MENOPAUSAL SYMPTOMS
     Dosage: ORAL
     Route: 048
     Dates: start: 19920101, end: 20030101
  2. ACTIVELLA [Suspect]
     Indication: MENOPAUSAL SYMPTOMS
     Dosage: ORAL
     Route: 048
     Dates: start: 19920101, end: 20030101
  3. ESTRACE [Suspect]
     Indication: MENOPAUSAL SYMPTOMS
     Dosage: ORAL 1992 TO 2003  WAS TIME FRAME PATIENT TOOK SEVERAL HRT DRUGS
     Route: 048
     Dates: start: 19920101, end: 20030101
  4. ESTRADIOL [Suspect]
     Indication: MENOPAUSAL SYMPTOMS
     Dosage: ORAL 1992 TO 2003 WAS TIME FRAME PATIENT TOOK SEVERAL HRT DRUGS
     Route: 048
     Dates: start: 19920101, end: 20030101
  5. PREMARIN [Suspect]
     Indication: MENOPAUSAL SYMPTOMS
     Dosage: ORAL 1992 TO 2003 WAS TIME FRAME PATIENT TOOK SEVERAL HRT DRUGS
     Route: 048
     Dates: start: 19920101, end: 20030101
  6. PROVERA [Suspect]
     Indication: MENOPAUSAL SYMPTOMS
     Dosage: ORAL 1992 TO 2003 WAS TIME FRAME PATIENT TOOK SEVERAL HRT DRUGS
     Route: 048
     Dates: start: 19920101, end: 20030101

REACTIONS (1)
  - BREAST CANCER [None]
